FAERS Safety Report 7962588-3 (Version None)
Quarter: 2011Q4

REPORT INFORMATION
  Report Type: 
  Country: None (occurrence: None)
  Receive Date: 20111207
  Receipt Date: 20111201
  Transmission Date: 20120403
  Serious: Yes (Other)
  Sender: FDA-Public Use
  Company Number: CN-B.I. PHARMACEUTICALS,INC./RIDGEFIELD-2011-CS-01132CS

PATIENT
  Age: 3 Year
  Sex: Female
  Weight: 20 kg

DRUGS (2)
  1. VENTOLIN [Suspect]
     Indication: ASTHMA
     Route: 042
     Dates: start: 20111201, end: 20111201
  2. ATROVENT [Suspect]
     Indication: ASTHMA
     Dosage: 250 MCG
     Route: 042
     Dates: start: 20111201, end: 20111201

REACTIONS (3)
  - INCORRECT ROUTE OF DRUG ADMINISTRATION [None]
  - TREMOR [None]
  - TACHYCARDIA [None]
